FAERS Safety Report 12729488 (Version 4)
Quarter: 2017Q1

REPORT INFORMATION
  Report Type: Report from Study
  Country: FR (occurrence: FR)
  Receive Date: 20160909
  Receipt Date: 20170105
  Transmission Date: 20170428
  Serious: Yes (Hospitalization, Other)
  Sender: FDA-Public Use
  Company Number: FR-JNJFOC-20160905759

PATIENT
  Age: 53 Year
  Sex: Female
  Weight: 111 kg

DRUGS (2)
  1. STELARA [Suspect]
     Active Substance: USTEKINUMAB
     Indication: PSORIASIS
     Route: 058
     Dates: start: 20141010, end: 20160521
  2. TIANEPTINE SODIUM [Concomitant]
     Active Substance: TIANEPTINE SODIUM
     Route: 065
     Dates: start: 200602

REACTIONS (4)
  - Rebound psoriasis [Recovered/Resolved]
  - Breast neoplasm [Unknown]
  - Off label use [Unknown]
  - Product use issue [Unknown]

NARRATIVE: CASE EVENT DATE: 20141010
